FAERS Safety Report 8421583-0 (Version None)
Quarter: 2012Q2

REPORT INFORMATION
  Report Type: 
  Country: None (occurrence: None)
  Receive Date: 20120601
  Receipt Date: 20120518
  Transmission Date: 20120825
  Serious: Yes (Death)
  Sender: FDA-Public Use
  Company Number: TPA2011A07921

PATIENT
  Age: 63 Year
  Sex: Male

DRUGS (7)
  1. LATTULOSIO (LACTULOSE) [Concomitant]
  2. POTASSIUM CANRENOATE (POTASSIUM CANRENOATE) [Concomitant]
  3. ADENURIC (FEBUXOSTAT) [Suspect]
     Indication: HYPERURICAEMIA
     Dosage: 120 MG (120 MG, 1 IN 1 D), ORAL
     Route: 048
     Dates: start: 20111028, end: 20111108
  4. RIFAMICINA (RIFAMYCIN) [Concomitant]
  5. ATENOLOL MYCOMED (ATENOLOL) [Concomitant]
  6. FUROSEMIDE [Concomitant]
  7. RABEPRAZOLE (RABAPRAZOLE) [Concomitant]

REACTIONS (3)
  - LIVER DISORDER [None]
  - RENAL FAILURE [None]
  - BLOOD IMMUNOGLOBULIN E INCREASED [None]
